FAERS Safety Report 4610066-1 (Version None)
Quarter: 2005Q1

REPORT INFORMATION
  Report Type: 
  Country: None (occurrence: None)
  Receive Date: 20050316
  Receipt Date: 20050225
  Transmission Date: 20050727
  Serious: Yes (Other)
  Sender: FDA-Public Use
  Company Number: FR-GLAXOSMITHKLINE-B0374762A

PATIENT

DRUGS (1)
  1. LAMOTRIGINE [Suspect]

REACTIONS (1)
  - FACIAL PALSY [None]
